FAERS Safety Report 6329472-2 (Version None)
Quarter: 2009Q3

REPORT INFORMATION
  Report Type: 
  Country: None (occurrence: None)
  Receive Date: 20090826
  Receipt Date: 20090818
  Transmission Date: 20100115
  Serious: Yes (Other)
  Sender: FDA-Public Use
  Company Number: US-LLY01-US200512002688

PATIENT
  Sex: Male
  Weight: 131.52 kg

DRUGS (17)
  1. BYETTA [Suspect]
     Indication: TYPE 2 DIABETES MELLITUS
     Dosage: 5 UG, UNK
     Route: 058
     Dates: start: 20050412, end: 20050512
  2. BYETTA [Suspect]
     Dosage: 10 UG, 2/D
     Route: 058
     Dates: start: 20050512, end: 20080228
  3. URSODIOL [Concomitant]
  4. CYCLOBENZAPRINE HCL [Concomitant]
  5. ADIPEX-P [Concomitant]
     Dates: end: 20051001
  6. SIMVASTATIN [Concomitant]
     Dosage: UNK, UNK
  7. EZETIMIBE [Concomitant]
  8. BENICAR                                 /USA/ [Concomitant]
  9. HYDROCHLOROTHIAZIDE [Concomitant]
  10. ANDROGEL [Concomitant]
     Dosage: 1 %, UNK
     Route: 061
  11. LASIX [Concomitant]
  12. CLONAZEPAM [Concomitant]
     Dates: end: 20051001
  13. PRANDIN [Concomitant]
     Dates: start: 20051101
  14. MOBIC [Concomitant]
  15. ULTRAM [Concomitant]
  16. LEVOXYL [Concomitant]
     Dates: start: 20030101
  17. ACTOS [Concomitant]
     Dates: end: 20051001

REACTIONS (2)
  - THYROID NEOPLASM [None]
  - WEIGHT INCREASED [None]
